FAERS Safety Report 8551353-4 (Version None)
Quarter: 2012Q3

REPORT INFORMATION
  Report Type: 
  Country: None (occurrence: None)
  Receive Date: 20120723
  Receipt Date: 20120723
  Transmission Date: 20120928
  Serious: Yes (Other)
  Sender: FDA-Public Use
  Company Number: None

PATIENT
  Age: 53 Year
  Sex: Female
  Weight: 72.5755 kg

DRUGS (2)
  1. BOTOX [Suspect]
     Indication: PAIN
     Dates: start: 20120212, end: 20120712
  2. BOTOX [Suspect]
     Indication: TEMPOROMANDIBULAR JOINT SYNDROME
     Dates: start: 20120212, end: 20120712

REACTIONS (13)
  - VOMITING [None]
  - INJECTION SITE PAIN [None]
  - EYE INFECTION [None]
  - ABDOMINAL PAIN UPPER [None]
  - ANXIETY [None]
  - URINARY TRACT INFECTION [None]
  - MIGRAINE [None]
  - KIDNEY INFECTION [None]
  - NAUSEA [None]
  - SINUSITIS [None]
  - NO THERAPEUTIC RESPONSE [None]
  - MYALGIA [None]
  - INFLUENZA LIKE ILLNESS [None]
